FAERS Safety Report 9170202 (Version 3)
Quarter: 2013Q3

REPORT INFORMATION
  Report Type: Spontaneous
  Country: GB (occurrence: GB)
  Receive Date: 20130319
  Receipt Date: 20130702
  Transmission Date: 20140515
  Serious: Yes (Other)
  Sender: FDA-Public Use
  Company Number: PHFR2013GB001293

PATIENT
  Age: 30 Year
  Sex: Male

DRUGS (3)
  1. CLOZARIL [Suspect]
     Indication: BIPOLAR DISORDER
     Dosage: 325 MG, UNK
     Route: 048
     Dates: start: 20111103
  2. DEPAKOTE [Concomitant]
     Dosage: 1500 MG,
     Route: 048
  3. DIAZEPAM [Concomitant]
     Route: 048

REACTIONS (3)
  - Differential white blood cell count abnormal [Recovered/Resolved]
  - White blood cell count increased [Unknown]
  - Neutrophil count increased [Unknown]
